FAERS Safety Report 7632430-9 (Version None)
Quarter: 2011Q3

REPORT INFORMATION
  Report Type: 
  Country: None (occurrence: None)
  Receive Date: 20110725
  Receipt Date: 20100902
  Transmission Date: 20111222
  Serious: No
  Sender: FDA-Public Use
  Company Number: US-BRISTOL-MYERS SQUIBB COMPANY-15271026

PATIENT
  Sex: Female

DRUGS (2)
  1. COUMADIN [Suspect]
  2. PREDNISONE [Suspect]

REACTIONS (2)
  - WEIGHT INCREASED [None]
  - DRUG HYPERSENSITIVITY [None]
